FAERS Safety Report 5868738-7 (Version None)
Quarter: 2008Q3

REPORT INFORMATION
  Report Type: 
  Country: None (occurrence: None)
  Receive Date: 20080828
  Receipt Date: 20080819
  Transmission Date: 20090109
  Serious: Yes (Other)
  Sender: FDA-Public Use
  Company Number: 2008US002084

PATIENT
  Age: 43 Year
  Sex: 0
  Weight: 220 kg

DRUGS (1)
  1. LEXISCAN [Suspect]
     Indication: SCAN MYOCARDIAL PERFUSION
     Dates: start: 20080805

REACTIONS (2)
  - CONVULSION [None]
  - HEART RATE INCREASED [None]
